FAERS Safety Report 25131446 (Version 4)
Quarter: 2025Q2

REPORT INFORMATION
  Report Type: Report from Study
  Country: US (occurrence: US)
  Receive Date: 20250327
  Receipt Date: 20250626
  Transmission Date: 20250716
  Serious: Yes (Hospitalization)
  Sender: UPSHER SMITH LABORATORIES
  Company Number: US-UPSHER-SMITH LABORATORIES, LLC-2024USL00298

PATIENT
  Sex: Female
  Weight: 10 kg

DRUGS (5)
  1. VIGADRONE [Suspect]
     Active Substance: VIGABATRIN
     Indication: Infantile spasms
     Dates: start: 20231221
  2. VIGADRONE [Suspect]
     Active Substance: VIGABATRIN
     Route: 045
  3. VIGADRONE [Suspect]
     Active Substance: VIGABATRIN
     Route: 065
     Dates: start: 20231221
  4. VIGADRONE [Suspect]
     Active Substance: VIGABATRIN
  5. VIGADRONE [Suspect]
     Active Substance: VIGABATRIN

REACTIONS (5)
  - Dyspnoea [Not Recovered/Not Resolved]
  - Paranasal sinus hypersecretion [Not Recovered/Not Resolved]
  - COVID-19 [Unknown]
  - Abdominal discomfort [Unknown]
  - Feeling abnormal [Unknown]
